FAERS Safety Report 9384772 (Version 1)
Quarter: 2013Q3

REPORT INFORMATION
  Report Type: Spontaneous
  Country: DE (occurrence: DE)
  Receive Date: 20130705
  Receipt Date: 20130705
  Transmission Date: 20140515
  Serious: Yes (Other)
  Sender: FDA-Public Use
  Company Number: DE-ROCHE-1245117

PATIENT
  Age: 70 Year
  Sex: Male

DRUGS (1)
  1. MABTHERA [Suspect]
     Indication: LYMPHOMA
     Route: 065
     Dates: end: 201201

REACTIONS (1)
  - Hepatitis [Unknown]
